FAERS Safety Report 7501787-1 (Version None)
Quarter: 2011Q2

REPORT INFORMATION
  Report Type: 
  Country: None (occurrence: None)
  Receive Date: 20110523
  Receipt Date: 20110523
  Transmission Date: 20111010
  Serious: Yes (Other)
  Sender: FDA-Public Use
  Company Number: None

PATIENT
  Age: 32 Year
  Sex: Female
  Weight: 60 kg

DRUGS (1)
  1. CETIRIZINE HCL [Suspect]
     Indication: HYPERSENSITIVITY
     Dosage: 10 MG ONCE A DAY PO
     Route: 048
     Dates: start: 20110427, end: 20110518

REACTIONS (6)
  - PAIN [None]
  - BURNING SENSATION [None]
  - SWELLING [None]
  - PRURITUS GENERALISED [None]
  - ERYTHEMA [None]
  - URTICARIA [None]
